FAERS Safety Report 20499873 (Version 1)
Quarter: 2022Q1

REPORT INFORMATION
  Report Type: Spontaneous
  Country: US (occurrence: US)
  Receive Date: 20220222
  Receipt Date: 20220222
  Transmission Date: 20220423
  Serious: No
  Sender: FDA-Public Use
  Company Number: US-UCBSA-2021023774

PATIENT
  Age: 14 Year
  Sex: Male
  Weight: 73 kg

DRUGS (12)
  1. LEVETIRACETAM [Suspect]
     Active Substance: LEVETIRACETAM
     Indication: Status epilepticus
     Dosage: LOADING DOSE
  2. BUPROPION [Concomitant]
     Active Substance: BUPROPION
     Indication: Suicide attempt
     Dosage: INGESTING NO MORE THAN 30 OF BUPROPION 75MG
  3. LORAZEPAM [Concomitant]
     Active Substance: LORAZEPAM
     Indication: Status epilepticus
     Dosage: THREE DOSES OF LORAZEPAM 4 MG
     Route: 042
  4. PROPOFOL [Concomitant]
     Active Substance: PROPOFOL
     Indication: Status epilepticus
     Dosage: UNK
     Route: 042
  5. ROCURONIUM [Concomitant]
     Active Substance: ROCURONIUM BROMIDE
     Indication: Status epilepticus
     Dosage: UNK
     Route: 042
  6. FENTANYL [Concomitant]
     Active Substance: FENTANYL
     Indication: Status epilepticus
     Dosage: 75 MILLIGRAMS
  7. FENTANYL [Concomitant]
     Active Substance: FENTANYL
     Dosage: INFUSION 50 MG/HOUR
  8. FENTANYL [Concomitant]
     Active Substance: FENTANYL
     Dosage: 250 MG FENTANYL, IN 50-MG BOLUSES
  9. MIDAZOLAM [Concomitant]
     Active Substance: MIDAZOLAM
     Indication: Status epilepticus
     Dosage: 2 MILLIGRAMS PER HOUR
  10. MIDAZOLAM [Concomitant]
     Active Substance: MIDAZOLAM
     Dosage: 7 MILLIGRAM, HOURLY
  11. MIDAZOLAM [Concomitant]
     Active Substance: MIDAZOLAM
     Dosage: 5 MILLIGRAM, HOURLY
  12. CYPROHEPTADINE [Concomitant]
     Active Substance: CYPROHEPTADINE
     Indication: Status epilepticus
     Dosage: 8 MILLIGRAM

REACTIONS (1)
  - Product use in unapproved indication [Unknown]
